FAERS Safety Report 21688511 (Version 2)
Quarter: 2023Q2

REPORT INFORMATION
  Report Type: Spontaneous
  Country: BR (occurrence: BR)
  Receive Date: 20221206
  Receipt Date: 20230407
  Transmission Date: 20230721
  Serious: Yes (Hospitalization, Other)
  Sender: FDA-Public Use
  Company Number: BR-NOVOPROD-986481

PATIENT
  Age: 36 Year
  Sex: Female

DRUGS (2)
  1. VICTOZA [Suspect]
     Active Substance: LIRAGLUTIDE
     Indication: Type 2 diabetes mellitus
     Dosage: 14KIU (FREQUENCY NOT MENTIONED)
     Dates: start: 2020
  2. PRISTIQ EXTENDED-RELEASE [Concomitant]
     Active Substance: DESVENLAFAXINE SUCCINATE
     Indication: Antidepressant therapy
     Dosage: 100 MG, QD

REACTIONS (5)
  - Endometriosis [Recovered/Resolved]
  - Adenomyosis [Recovered/Resolved]
  - Leiomyoma [Recovered/Resolved]
  - Polycystic ovaries [Unknown]
  - Anaemia [Unknown]

NARRATIVE: CASE EVENT DATE: 20220801
